FAERS Safety Report 7898574-1 (Version None)
Quarter: 2011Q4

REPORT INFORMATION
  Report Type: 
  Country: None (occurrence: None)
  Receive Date: 20111101
  Receipt Date: 20110502
  Transmission Date: 20120403
  Serious: Yes (Other)
  Sender: FDA-Public Use
  Company Number: 279046USA

PATIENT
  Sex: Female

DRUGS (1)
  1. CLINDAMYCIN HYDROCHLORIDE [Suspect]
     Dosage: (150 MG)

REACTIONS (2)
  - CLOSTRIDIUM DIFFICILE COLITIS [None]
  - INFLUENZA LIKE ILLNESS [None]
